FAERS Safety Report 25007335 (Version 2)
Quarter: 2025Q2

REPORT INFORMATION
  Report Type: Spontaneous
  Country: GB (occurrence: GB)
  Receive Date: 20250225
  Receipt Date: 20250414
  Transmission Date: 20250717
  Serious: Yes (Other)
  Sender: JOHNSON AND JOHNSON
  Company Number: None

PATIENT
  Age: 57 Year
  Sex: Male

DRUGS (1)
  1. REMICADE [Suspect]
     Active Substance: INFLIXIMAB
     Indication: Inflammatory bowel disease
     Route: 041

REACTIONS (4)
  - Tooth loss [Recovering/Resolving]
  - Withdrawal syndrome [Unknown]
  - Abnormal weight gain [Recovering/Resolving]
  - Neuropsychological symptoms [Recovering/Resolving]
